FAERS Safety Report 17838596 (Version 1)
Quarter: 2020Q2

REPORT INFORMATION
  Report Type: Spontaneous
  Country: PL (occurrence: PL)
  Receive Date: 20200528
  Receipt Date: 20200528
  Transmission Date: 20200714
  Serious: Yes (Other)
  Sender: FDA-Public Use
  Company Number: NVSC2020PL141029

PATIENT
  Age: 64 Year
  Sex: Male

DRUGS (2)
  1. SANDOSTATIN LAR DEPOT [Suspect]
     Active Substance: OCTREOTIDE ACETATE
     Indication: PRODUCT USED FOR UNKNOWN INDICATION
     Dosage: 200 MG, Q4W
     Route: 065
     Dates: start: 201301
  2. SANDOSTATIN LAR DEPOT [Suspect]
     Active Substance: OCTREOTIDE ACETATE
     Dosage: 30 MG, Q4W
     Route: 065

REACTIONS (13)
  - Mediastinal mass [Unknown]
  - Testicular mass [Unknown]
  - Hyperleukocytosis [Unknown]
  - Metastases to adrenals [Unknown]
  - Visual acuity reduced [Unknown]
  - Vertebral lesion [Unknown]
  - Diarrhoea [Recovered/Resolved]
  - Exophthalmos [Unknown]
  - Metastases to thorax [Unknown]
  - Orbital space occupying lesion [Unknown]
  - Adrenal neoplasm [Unknown]
  - Pulmonary mass [Unknown]
  - Pelvic neoplasm [Unknown]

NARRATIVE: CASE EVENT DATE: 201302
